FAERS Safety Report 9192996 (Version 2)
Quarter: 2013Q2

REPORT INFORMATION
  Report Type: Report from Study
  Country: US (occurrence: US)
  Receive Date: 20130327
  Receipt Date: 20130523
  Transmission Date: 20140414
  Serious: Yes (Hospitalization, Other)
  Sender: FDA-Public Use
  Company Number: PHEH2013US006666

PATIENT
  Sex: Male

DRUGS (9)
  1. GILENYA [Suspect]
     Indication: MULTIPLE SCLEROSIS
     Dosage: 0.5 MG, QD
     Route: 048
     Dates: start: 20120921
  2. ANTIDEPRESSANTS [Concomitant]
  3. CLONAZEPAM [Concomitant]
  4. GABAPENTIN [Concomitant]
  5. LEVETIRACETAM [Concomitant]
  6. LISINOPRIL [Concomitant]
  7. NIFEDIPINE [Concomitant]
  8. OXYCODONE [Concomitant]
  9. RITALIN [Concomitant]

REACTIONS (3)
  - Suicidal ideation [Not Recovered/Not Resolved]
  - Aggression [Unknown]
  - Depression [Not Recovered/Not Resolved]
